FAERS Safety Report 7407031-8 (Version None)
Quarter: 2011Q2

REPORT INFORMATION
  Report Type: 
  Country: None (occurrence: None)
  Receive Date: 20110411
  Receipt Date: 20110216
  Transmission Date: 20111010
  Serious: Yes (Other)
  Sender: FDA-Public Use
  Company Number: US-BAYER-201033324NA

PATIENT
  Age: 26 Year
  Sex: Female
  Weight: 100 kg

DRUGS (7)
  1. ADVIL LIQUI-GELS [Concomitant]
  2. IBUPROFEN [Concomitant]
  3. MULTI-VITAMINS [Concomitant]
     Route: 048
  4. CENTRUM [Concomitant]
     Route: 048
  5. YASMIN [Suspect]
     Indication: ORAL CONTRACEPTION
     Route: 048
     Dates: start: 20050801, end: 20081101
  6. YASMIN [Suspect]
     Indication: MENSTRUATION IRREGULAR
  7. VITAMIN B-12 [Concomitant]
     Route: 048

REACTIONS (4)
  - PAIN [None]
  - NAUSEA [None]
  - CHOLELITHIASIS [None]
  - CHOLECYSTITIS [None]
